FAERS Safety Report 8173093-6 (Version None)
Quarter: 2012Q1

REPORT INFORMATION
  Report Type: 
  Country: None (occurrence: None)
  Receive Date: 20120229
  Receipt Date: 20120220
  Transmission Date: 20120608
  Serious: Yes (Other)
  Sender: FDA-Public Use
  Company Number: IT-JNJFOC-20120208582

PATIENT
  Age: 55 Year
  Sex: Male

DRUGS (4)
  1. REMICADE [Suspect]
     Route: 042
     Dates: start: 20111107, end: 20120215
  2. REMICADE [Suspect]
     Indication: INFLAMMATORY BOWEL DISEASE
     Route: 042
     Dates: start: 20111107, end: 20120215
  3. REMICADE [Suspect]
     Indication: COLITIS ULCERATIVE
     Route: 042
     Dates: start: 20120215, end: 20120215
  4. REMICADE [Suspect]
     Route: 042
     Dates: start: 20120215, end: 20120215

REACTIONS (3)
  - RASH PRURITIC [None]
  - MALAISE [None]
  - INFUSION RELATED REACTION [None]
